FAERS Safety Report 16416641 (Version 3)
Quarter: 2019Q4

REPORT INFORMATION
  Report Type: Spontaneous
  Country: JP (occurrence: JP)
  Receive Date: 20190611
  Receipt Date: 20191112
  Transmission Date: 20200122
  Serious: Yes (Hospitalization, Other)
  Sender: FDA-Public Use
  Company Number: JP-GILEAD-2019-0410791

PATIENT
  Age: 51 Year
  Sex: Male
  Weight: 74.25 kg

DRUGS (3)
  1. EPCLUSA [Suspect]
     Active Substance: SOFOSBUVIR\VELPATASVIR
     Indication: HEPATITIS C
     Dosage: 1 DOSAGE FORM/DAY
     Route: 048
     Dates: start: 20190522, end: 20190603
  2. EPCLUSA [Suspect]
     Active Substance: SOFOSBUVIR\VELPATASVIR
     Indication: HEPATIC CIRRHOSIS
     Dosage: 1 DOSAGE FORM/DAY
     Route: 048
     Dates: start: 20190621
  3. LIVACT [ISOLEUCINE;LEUCINE;VALINE] [Concomitant]
     Indication: HYPOALBUMINAEMIA
     Dosage: UNK
     Route: 048
     Dates: start: 20181210

REACTIONS (1)
  - Nephrotic syndrome [Not Recovered/Not Resolved]

NARRATIVE: CASE EVENT DATE: 20190603
